FAERS Safety Report 14567208 (Version 2)
Quarter: 2018Q2

REPORT INFORMATION
  Report Type: Spontaneous
  Country: IT (occurrence: IT)
  Receive Date: 20180223
  Receipt Date: 20180613
  Transmission Date: 20180711
  Serious: Yes (Other)
  Sender: FDA-Public Use
  Company Number: IT-PFIZER INC-2018077674

PATIENT
  Age: 14 Year
  Sex: Male
  Weight: 48 kg

DRUGS (16)
  1. MERREM [Concomitant]
     Active Substance: MEROPENEM
     Dosage: 1 G, ONCE DAILY
     Route: 042
     Dates: start: 20170520, end: 20170617
  2. HUMAN SERUM ALBUMIN [Concomitant]
     Active Substance: ALBUMIN HUMAN
     Dosage: 100 MG, UNK
     Route: 042
     Dates: start: 20170616, end: 20170621
  3. FUROSEMIDE. [Concomitant]
     Active Substance: FUROSEMIDE
     Dosage: 20 MG, ONCE DAILY
     Route: 042
     Dates: start: 20170523, end: 20170626
  4. CICLOSPORIN [Concomitant]
     Active Substance: CYCLOSPORINE
     Dosage: 75 MG, ONCE DAILY
     Dates: start: 20170527, end: 20170620
  5. CLINDAMYCIN. [Concomitant]
     Active Substance: CLINDAMYCIN
     Dosage: 300 MG, ONCE DAILY
     Route: 042
     Dates: start: 20170520, end: 20170617
  6. URSODEOXYCHOLIC ACID [Concomitant]
     Active Substance: URSODIOL
     Dosage: 900 MG, UNK
     Route: 048
  7. ACICLOVIR [Concomitant]
     Active Substance: ACYCLOVIR
     Dosage: 1500 MG, UNK
     Route: 042
  8. TYGACIL [Suspect]
     Active Substance: TIGECYCLINE
     Dosage: 100 MG, ONCE DAILY
     Route: 042
     Dates: start: 20170603, end: 20170622
  9. HEPARIN [Concomitant]
     Active Substance: HEPARIN SODIUM
     Dosage: 5000 DOSAGE FORM (DF), ONCE DAILY
     Route: 042
     Dates: start: 20170523, end: 20170619
  10. CICLOSPORIN [Concomitant]
     Active Substance: CYCLOSPORINE
     Dosage: 160 MG, UNK
     Route: 042
  11. TYGACIL [Suspect]
     Active Substance: TIGECYCLINE
     Dosage: 50 MG, ONCE DAILY
     Route: 042
     Dates: start: 20170603, end: 20170622
  12. MERREM [Concomitant]
     Active Substance: MEROPENEM
     Dosage: 3 G, UNK
     Route: 042
     Dates: start: 20170520, end: 20170617
  13. MYCOSTATIN [Concomitant]
     Active Substance: NYSTATIN
     Dosage: 15 ML, UNK
     Route: 048
  14. CIPROFLOXACIN. [Concomitant]
     Active Substance: CIPROFLOXACIN
     Dosage: 800 MG, ONCE DAILY
     Dates: start: 20170617, end: 20170626
  15. URSODEOXYCHOLIC ACID [Concomitant]
     Active Substance: URSODIOL
     Dosage: 300 MG, ONCE DAILY
     Route: 048
     Dates: start: 20170523, end: 20170626
  16. FUROSEMIDE. [Concomitant]
     Active Substance: FUROSEMIDE
     Dosage: 40 MG, UNK
     Route: 042
     Dates: start: 20170523, end: 20170626

REACTIONS (2)
  - Lip oedema [Recovered/Resolved]
  - Infusion related reaction [Recovered/Resolved]

NARRATIVE: CASE EVENT DATE: 20170622
